FAERS Safety Report 8223738-7 (Version None)
Quarter: 2012Q1

REPORT INFORMATION
  Report Type: 
  Country: None (occurrence: None)
  Receive Date: 20120321
  Receipt Date: 20120313
  Transmission Date: 20120608
  Serious: Yes (Congenital Anomaly, Other)
  Sender: FDA-Public Use
  Company Number: DE-UCBSA-053364

PATIENT
  Sex: Male
  Weight: 3.6 kg

DRUGS (3)
  1. VIMPAT [Suspect]
     Indication: EPILEPSY
     Route: 064
     Dates: start: 20091101, end: 20100801
  2. LAMOTRIGINE [Suspect]
     Indication: EPILEPSY
     Dosage: 225-225-250MG
     Route: 064
     Dates: start: 20091101, end: 20100801
  3. FOLSAURE [Concomitant]
     Indication: PROPHYLAXIS OF NEURAL TUBE DEFECT
     Route: 064
     Dates: start: 20091101

REACTIONS (5)
  - ATRIAL SEPTAL DEFECT [None]
  - FOETAL EXPOSURE DURING PREGNANCY [None]
  - BRADYCARDIA NEONATAL [None]
  - COARCTATION OF THE AORTA [None]
  - HYPERBILIRUBINAEMIA [None]
